FAERS Safety Report 4303705-6 (Version None)
Quarter: 2004Q1

REPORT INFORMATION
  Report Type: 
  Country: None (occurrence: None)
  Receive Date: 20040224
  Receipt Date: 20030514
  Transmission Date: 20041129
  Serious: Yes (Hospitalization)
  Sender: FDA-Public Use
  Company Number: 03-05-0597

PATIENT
  Age: 60 Year
  Sex: Female

DRUGS (3)
  1. INDOMETHACIN [Suspect]
     Indication: GOUT
     Dosage: 50 MG QD ORAL
     Route: 048
     Dates: start: 20030426, end: 20030514
  2. TOPROL-XL [Concomitant]
  3. TYLENOL (CAPLET) [Concomitant]

REACTIONS (4)
  - DIARRHOEA [None]
  - DIZZINESS [None]
  - DRUG EFFECT DECREASED [None]
  - VOMITING [None]
